FAERS Safety Report 4413352-3 (Version None)
Quarter: 2004Q3

REPORT INFORMATION
  Report Type: 
  Country: None (occurrence: None)
  Receive Date: 20040728
  Receipt Date: 20040719
  Transmission Date: 20050211
  Serious: Yes (Other)
  Sender: FDA-Public Use
  Company Number: ZONI001469

PATIENT
  Age: 3 Year
  Sex: Female

DRUGS (2)
  1. ZONEGRAN [Suspect]
     Indication: CONVULSION
     Dosage: 150 MG DAILY ORAL
     Route: 048
     Dates: start: 20040619
  2. ZONEGRAN [Suspect]
     Indication: LIMB INJURY
     Dosage: 150 MG DAILY ORAL
     Route: 048
     Dates: start: 20040619

REACTIONS (6)
  - ACCIDENT [None]
  - CONVULSION [None]
  - FINGER CRUSHING [None]
  - LIMB TRAUMATIC AMPUTATION [None]
  - OPEN FRACTURE [None]
  - VIRAL RASH [None]
